FAERS Safety Report 14619650 (Version 3)
Quarter: 2018Q3

REPORT INFORMATION
  Report Type: Spontaneous
  Country: FR (occurrence: FR)
  Receive Date: 20180309
  Receipt Date: 20180727
  Transmission Date: 20181010
  Serious: Yes (Death, Life-Threatening, Other)
  Sender: FDA-Public Use
  Company Number: FR-ASTRAZENECA-2018SE26611

PATIENT
  Age: 55 Year
  Sex: Male
  Weight: 108 kg

DRUGS (9)
  1. INEXIUM [Suspect]
     Active Substance: ESOMEPRAZOLE
     Indication: PROPHYLAXIS
     Route: 042
     Dates: start: 20171023, end: 20171130
  2. KCL [Suspect]
     Active Substance: POTASSIUM CHLORIDE
     Indication: HAEMOFILTRATION
     Route: 010
     Dates: start: 20171029
  3. ADRENALINE [Suspect]
     Active Substance: EPINEPHRINE
     Indication: SHOCK
     Route: 042
     Dates: start: 20171023, end: 20171123
  4. NORADRENALINE [Suspect]
     Active Substance: NOREPINEPHRINE
     Indication: SHOCK
     Route: 042
     Dates: start: 20171023, end: 20171123
  5. LACTATED RINGERS SOLUTION [Suspect]
     Active Substance: CALCIUM CHLORIDE\POTASSIUM CHLORIDE\SODIUM CHLORIDE\SODIUM LACTATE
     Indication: HYPOVOLAEMIA
     Dosage: 500.0ML UNKNOWN
     Route: 042
     Dates: start: 20171028, end: 20171028
  6. MIDAZOLAM [Suspect]
     Active Substance: MIDAZOLAM HYDROCHLORIDE
     Indication: SEDATION
     Route: 042
     Dates: start: 20171023, end: 20171123
  7. TAZOCILLINE [Suspect]
     Active Substance: PIPERACILLIN SODIUM\TAZOBACTAM SODIUM
     Indication: LUNG DISORDER
     Route: 042
     Dates: start: 20171025, end: 20171101
  8. HYDROCORTISONE HYDROGEN SUCCINATE [Suspect]
     Active Substance: HYDROCORTISONE
     Indication: SHOCK
     Route: 042
     Dates: start: 20171023, end: 20171130
  9. SUFENTA [Suspect]
     Active Substance: SUFENTANIL CITRATE
     Indication: SEDATION
     Dosage: 20UG/INHAL EVERY HOUR
     Route: 042
     Dates: start: 20171023, end: 20171123

REACTIONS (4)
  - Renal tubular necrosis [Fatal]
  - Death [Fatal]
  - Metabolic acidosis [Fatal]
  - Condition aggravated [Fatal]

NARRATIVE: CASE EVENT DATE: 20171025
